FAERS Safety Report 18199299 (Version 3)
Quarter: 2020Q3

REPORT INFORMATION
  Report Type: Report from Study
  Country: MX (occurrence: MX)
  Receive Date: 20200826
  Receipt Date: 20200923
  Transmission Date: 20201103
  Serious: Yes (Life-Threatening, Hospitalization)
  Sender: FDA-Public Use
  Company Number: NVSC2020MX235193

PATIENT
  Age: 61 Year
  Sex: Female
  Weight: 92 kg

DRUGS (3)
  1. EXFORGE HCT [Suspect]
     Active Substance: AMLODIPINE BESYLATE\HYDROCHLOROTHIAZIDE\VALSARTAN
     Indication: HYPERTENSION
     Dosage: 0.5 DF, BID (10MG/160MG/12.5MG)
     Route: 048
     Dates: start: 2019
  2. EXFORGE HCT [Suspect]
     Active Substance: AMLODIPINE BESYLATE\HYDROCHLOROTHIAZIDE\VALSARTAN
     Dosage: 0.5 DF BID (10/320/25 MG)
     Route: 048
  3. METFORMIN [Concomitant]
     Active Substance: METFORMIN HYDROCHLORIDE
     Indication: DIABETES MELLITUS
     Dosage: 1.5 DF (1 1/2 850 MG), QD
     Route: 048

REACTIONS (2)
  - Cholelithiasis [Recovering/Resolving]
  - Product prescribing error [Not Recovered/Not Resolved]

NARRATIVE: CASE EVENT DATE: 20200804
